FAERS Safety Report 12539838 (Version 4)
Quarter: 2017Q3

REPORT INFORMATION
  Report Type: Report from Study
  Country: KR (occurrence: KR)
  Receive Date: 20160708
  Receipt Date: 20170719
  Transmission Date: 20171127
  Serious: Yes (Hospitalization)
  Sender: FDA-Public Use
  Company Number: KR-ROCHE-1780593

PATIENT
  Age: 79 Year
  Sex: Female

DRUGS (26)
  1. FEROBA-YOU [Concomitant]
     Indication: ANAEMIA
     Route: 065
     Dates: start: 20150629
  2. LOPERAMIDE [Concomitant]
     Active Substance: LOPERAMIDE
     Indication: PROPHYLAXIS
     Route: 065
     Dates: start: 20160614
  3. AMOSARTAN [Concomitant]
     Indication: HYPERTENSION
     Route: 065
     Dates: start: 20151221
  4. LIPITOR [Concomitant]
     Active Substance: ATORVASTATIN CALCIUM
     Indication: HYPERLIPIDAEMIA
     Route: 065
     Dates: start: 20151221
  5. ANYCOUGH [Concomitant]
     Active Substance: THEOBROMINE
     Indication: UPPER RESPIRATORY TRACT INFECTION
     Route: 065
     Dates: start: 20160526
  6. DICLOMED (SOUTH KOREA) [Concomitant]
     Indication: UPPER RESPIRATORY TRACT INFECTION
     Dosage: 0.074 %
     Route: 065
     Dates: start: 20160531, end: 20160614
  7. PIRENOXINE [Concomitant]
     Active Substance: PIRENOXINE
     Indication: CATARACT
     Dosage: 0.05 MG/ML
     Route: 065
     Dates: start: 20160108
  8. FEXONADINE [Concomitant]
     Indication: PRURITUS GENERALISED
     Route: 065
     Dates: start: 20160114
  9. MONTELUKAST [Concomitant]
     Active Substance: MONTELUKAST SODIUM
     Indication: ASTHMA
     Route: 065
     Dates: start: 20100811
  10. BRONUCK [Concomitant]
     Active Substance: BROMFENAC SODIUM
     Indication: CATARACT
     Route: 065
     Dates: start: 20160108
  11. SYNATURA [Concomitant]
     Indication: UPPER RESPIRATORY TRACT INFECTION
     Route: 065
     Dates: start: 20160531
  12. TRIFLUSAL [Concomitant]
     Active Substance: TRIFLUSAL
     Indication: PROPHYLAXIS
     Route: 065
     Dates: start: 201405
  13. SERETIDE [Concomitant]
     Active Substance: FLUTICASONE PROPIONATE\SALMETEROL XINAFOATE
     Indication: ASTHMA
     Route: 065
     Dates: start: 20121105
  14. TRAJENTA [Concomitant]
     Active Substance: LINAGLIPTIN
     Indication: DIABETES MELLITUS
     Route: 065
     Dates: start: 20151221, end: 20160627
  15. TERRAMYCIN (OXYTETRACYCLINE HYDROCHLORIDE/POLYMYXIN B SULFATE) [Concomitant]
     Indication: EPISTAXIS
     Route: 065
     Dates: start: 20160112
  16. UDCA [Concomitant]
     Active Substance: URSODIOL
     Indication: PROPHYLAXIS
     Route: 065
     Dates: start: 20160225
  17. MUCOSOL (BROMHEXINE HYDROCHLORIDE) [Concomitant]
     Indication: UPPER RESPIRATORY TRACT INFECTION
     Route: 065
     Dates: start: 20160526, end: 20160610
  18. TRASTUZUMAB EMTANSINE [Suspect]
     Active Substance: ADO-TRASTUZUMAB EMTANSINE
     Indication: HER-2 POSITIVE BREAST CANCER
     Dosage: DATE OF LAST DOSE OF T-DM1: 26/MAY/2016
     Route: 042
     Dates: start: 20150722
  19. CHLORPHENIRAMINE. [Concomitant]
     Active Substance: CHLORPHENIRAMINE
     Route: 065
     Dates: start: 20140715, end: 20160527
  20. ANTIS (BENZYDAMINE) [Concomitant]
     Indication: UPPER RESPIRATORY TRACT INFECTION
     Route: 065
     Dates: start: 20160531, end: 20160614
  21. PHAZYME [Concomitant]
     Active Substance: DIMETHICONE 410
     Indication: DYSPEPSIA
     Route: 065
     Dates: start: 20160324
  22. VENTOLIN [Concomitant]
     Active Substance: ALBUTEROL SULFATE
     Indication: ASTHMA
     Route: 065
     Dates: start: 20160627
  23. DICAMAX [Concomitant]
     Route: 065
     Dates: start: 20100518
  24. GLICLAZIDE [Concomitant]
     Active Substance: GLICLAZIDE
     Indication: DIABETES MELLITUS
     Route: 065
     Dates: start: 20151221
  25. LYRICA [Concomitant]
     Active Substance: PREGABALIN
     Indication: PERIPHERAL SENSORY NEUROPATHY
     Route: 065
     Dates: start: 20160114
  26. AIRTAL [Concomitant]
     Active Substance: ACECLOFENAC
     Indication: UPPER RESPIRATORY TRACT INFECTION
     Route: 065
     Dates: start: 20160531, end: 20160614

REACTIONS (2)
  - Pneumonia [Recovered/Resolved]
  - Oedema peripheral [Recovered/Resolved]

NARRATIVE: CASE EVENT DATE: 20160614
